FAERS Safety Report 13511193 (Version 2)
Quarter: 2017Q2

REPORT INFORMATION
  Report Type: Spontaneous
  Country: ES (occurrence: ES)
  Receive Date: 20170503
  Receipt Date: 20170620
  Transmission Date: 20170830
  Serious: Yes (Death, Hospitalization, Other)
  Sender: FDA-Public Use
  Company Number: ES-ALEXION PHARMACEUTICALS INC.-A201704608

PATIENT
  Age: 34 Year
  Sex: Female

DRUGS (2)
  1. SOLIRIS [Suspect]
     Active Substance: ECULIZUMAB
     Indication: HAEMOLYTIC URAEMIC SYNDROME
     Dosage: 900 MG, UNK
     Route: 042
     Dates: start: 20170308
  2. SOLIRIS [Suspect]
     Active Substance: ECULIZUMAB
     Dosage: 900 UNK, UNK
     Route: 042
     Dates: start: 20170315

REACTIONS (10)
  - Splenic rupture [Unknown]
  - Haemodynamic instability [Unknown]
  - Inappropriate schedule of drug administration [Unknown]
  - Distributive shock [Fatal]
  - Peritoneal haemorrhage [Unknown]
  - Pulmonary alveolar haemorrhage [Unknown]
  - Septic shock [Fatal]
  - Respiratory failure [Unknown]
  - Immunosuppression [Unknown]
  - Shock haemorrhagic [Unknown]

NARRATIVE: CASE EVENT DATE: 20170216
